FAERS Safety Report 12966488 (Version 1)
Quarter: 2016Q4

REPORT INFORMATION
  Report Type: Spontaneous
  Country: US (occurrence: US)
  Receive Date: 20161118
  Receipt Date: 20161118
  Transmission Date: 20170207
  Serious: No
  Sender: FDA-Public Use
  Company Number: None

PATIENT
  Age: 56 Year
  Sex: Female

DRUGS (1)
  1. HARVONI [Suspect]
     Active Substance: LEDIPASVIR\SOFOSBUVIR
     Indication: HEPATITIS C
     Dosage: 90/400MG DAILY BY MOUTH
     Route: 048
     Dates: start: 20160920

REACTIONS (3)
  - Muscle twitching [None]
  - Facial pain [None]
  - Discomfort [None]

NARRATIVE: CASE EVENT DATE: 20161102
